FAERS Safety Report 15974853 (Version 1)
Quarter: 2019Q1

REPORT INFORMATION
  Report Type: Other
  Country: US (occurrence: US)
  Receive Date: 20190218
  Receipt Date: 20190218
  Transmission Date: 20190418
  Serious: Yes (Hospitalization)
  Sender: FDA-Public Use
  Company Number: US-ORCHID HEALTHCARE-2062768

PATIENT
  Age: 43 Year
  Sex: Female

DRUGS (1)
  1. LEVOFLOXACIN. [Suspect]
     Active Substance: LEVOFLOXACIN
     Indication: EAR INFECTION
     Route: 048

REACTIONS (2)
  - Complex regional pain syndrome [Recovering/Resolving]
  - Neurotoxicity [Recovering/Resolving]
